FAERS Safety Report 21691948 (Version 2)
Quarter: 2023Q2

REPORT INFORMATION
  Report Type: Report from Study
  Country: US (occurrence: US)
  Receive Date: 20221207
  Receipt Date: 20230403
  Transmission Date: 20230722
  Serious: Yes (Other)
  Sender: FDA-Public Use
  Company Number: US-ABBVIE-4188917

PATIENT
  Sex: Female

DRUGS (3)
  1. HUMIRA [Suspect]
     Active Substance: ADALIMUMAB
     Indication: Crohn^s disease
     Route: 058
  2. HUMIRA [Suspect]
     Active Substance: ADALIMUMAB
     Route: 058
     Dates: start: 20210504
  3. HYOSCYAMINE [Concomitant]
     Active Substance: HYOSCYAMINE
     Indication: Product used for unknown indication
     Route: 065

REACTIONS (8)
  - Medical procedure [Unknown]
  - Blood pressure abnormal [Unknown]
  - Limb injury [Unknown]
  - Crohn^s disease [Unknown]
  - Drug ineffective [Unknown]
  - Rash [Unknown]
  - Stress [Unknown]
  - Nerve injury [Unknown]
